FAERS Safety Report 8297670-7 (Version None)
Quarter: 2012Q2

REPORT INFORMATION
  Report Type: 
  Country: None (occurrence: None)
  Receive Date: 20120419
  Receipt Date: 20120413
  Transmission Date: 20120825
  Serious: Yes (Hospitalization)
  Sender: FDA-Public Use
  Company Number: AU-JNJFOC-20120406761

PATIENT
  Sex: Female

DRUGS (16)
  1. STELARA [Suspect]
     Route: 058
     Dates: start: 20111213
  2. ALL OTHER THERAPEUTIC DRUGS [Concomitant]
     Route: 065
  3. INSULIN [Concomitant]
     Route: 065
  4. ZESTRIL [Concomitant]
     Route: 065
  5. NAPROXEN [Concomitant]
     Route: 065
  6. URO-CARB [Concomitant]
     Route: 065
  7. STELARA [Suspect]
     Route: 058
     Dates: start: 20120306
  8. STELARA [Suspect]
     Route: 058
     Dates: start: 20101207
  9. STELARA [Suspect]
     Route: 058
     Dates: start: 20110310
  10. CALCIUM CARBONATE [Concomitant]
     Route: 065
  11. STELARA [Suspect]
     Route: 058
     Dates: start: 20110906
  12. AVAPRO [Concomitant]
     Route: 065
  13. STELARA [Suspect]
     Indication: PSORIASIS
     Route: 058
     Dates: start: 20100528
  14. PANADOL OSTEO [Concomitant]
     Route: 065
  15. EFFEXOR [Concomitant]
     Route: 065
  16. METFORMIN HCL [Concomitant]
     Route: 065

REACTIONS (1)
  - ARTHROSCOPY [None]
